FAERS Safety Report 5216610-8 (Version None)
Quarter: 2007Q1

REPORT INFORMATION
  Report Type: 
  Country: None (occurrence: None)
  Receive Date: 20061130
  Receipt Date: 20060807
  Transmission Date: 20070707
  Serious: Yes (Hospitalization, Other)
  Sender: FDA-Public Use
  Company Number: US200608002382

PATIENT
  Age: 21 Year
  Sex: Male
  Weight: 93 kg

DRUGS (3)
  1. ZYPREXA [Suspect]
     Dosage: 15 MG, UNK; ORAL; 20 MG, UNK; ORAL, 35 MG, UNK; ORAL, 40 MG, UNK ORAL
     Route: 048
     Dates: start: 19990101
  2. DIVALPROEX SODIUM [Concomitant]
  3. LITHIUM CARBONATE [Concomitant]

REACTIONS (4)
  - DIABETES MELLITUS [None]
  - DIABETIC KETOACIDOSIS [None]
  - HYPERGLYCAEMIA [None]
  - PRESCRIBED OVERDOSE [None]
